FAERS Safety Report 25827039 (Version 1)
Quarter: 2025Q3

REPORT INFORMATION
  Report Type: Report from Study
  Country: GB (occurrence: GB)
  Receive Date: 20250920
  Receipt Date: 20250920
  Transmission Date: 20251020
  Serious: Yes (Other)
  Sender: ABBVIE
  Company Number: GB-ABBVIE-6465642

PATIENT
  Age: 51 Year
  Sex: Male

DRUGS (1)
  1. SKYRIZI [Suspect]
     Active Substance: RISANKIZUMAB-RZAA
     Indication: Psoriasis
     Dosage: SKYRIZI 150MG/1ML, DOSE FORM: SOLUTION FOR INJECTION PRE-FILLED PENS,1 PRE-FILLED DISPOSABLE INJE...
     Route: 058
     Dates: start: 20250512

REACTIONS (2)
  - Carpal tunnel syndrome [Unknown]
  - Arthropathy [Unknown]

NARRATIVE: CASE EVENT DATE: 20250101
